FAERS Safety Report 4566844-0 (Version None)
Quarter: 2005Q1

REPORT INFORMATION
  Report Type: 
  Country: None (occurrence: None)
  Receive Date: 20050201
  Receipt Date: 20020418
  Transmission Date: 20050727
  Serious: Yes (Other)
  Sender: FDA-Public Use
  Company Number: US-BRISTOL-MYERS SQUIBB COMPANY-11834785

PATIENT
  Age: 49 Year
  Sex: Female

DRUGS (9)
  1. STADOL [Suspect]
     Indication: MIGRAINE
     Route: 045
  2. HYDROCODONE + ACETAMINOPHEN [Concomitant]
  3. AMITRIPTYLINE [Concomitant]
  4. ULTRAM [Concomitant]
  5. ALPRAZOLAM [Concomitant]
  6. PROPRANOLOL HYDROCHLORIDE [Concomitant]
  7. OXYCONTIN [Concomitant]
  8. PROMETHAZINE [Concomitant]
  9. CARISOPRODOL [Concomitant]

REACTIONS (2)
  - DEPENDENCE [None]
  - DRUG WITHDRAWAL SYNDROME [None]
